FAERS Safety Report 21919451 (Version 3)
Quarter: 2023Q1

REPORT INFORMATION
  Report Type: Other
  Country: PK (occurrence: None)
  Receive Date: 20230127
  Receipt Date: 20230308
  Transmission Date: 20230418
  Serious: Yes (Death)
  Sender: FDA-Public Use
  Company Number: PK-ROCHE-3271514

PATIENT
  Age: 64 Year
  Sex: Male

DRUGS (1)
  1. MABTHERA [Suspect]
     Active Substance: RITUXIMAB
     Indication: Non-Hodgkin^s lymphoma
     Dosage: TOTAL NUMBER OF CYCLES ADMINISTERED = 02
     Route: 058
     Dates: start: 20220316, end: 20220527

REACTIONS (2)
  - Anaemia [Fatal]
  - Asthenia [Unknown]

NARRATIVE: CASE EVENT DATE: 20221101
